FAERS Safety Report 6087969 (Version 11)
Quarter: 2014Q1

REPORT INFORMATION
  Report Type: Spontaneous
  Country: US (occurrence: US)
  Receive Date: 20060721
  Receipt Date: 20140217
  Transmission Date: 20141002
  Serious: Yes (Life-Threatening, Hospitalization, Other)
  Sender: FDA-Public Use
  Company Number: US-ASTRAZENECA-2006UW14368

PATIENT
  Age: 51 Year
  Sex: Male
  Weight: 94.3 kg

DRUGS (75)
  1. SEROQUEL [Suspect]
     Indication: SCHIZOPHRENIA
     Dosage: 25-50 MG HS PLUS 25 MG BID PRN
     Route: 048
     Dates: start: 20041206
  2. SEROQUEL [Suspect]
     Indication: BIPOLAR I DISORDER
     Dosage: 25-50 MG HS PLUS 25 MG BID PRN
     Route: 048
     Dates: start: 20041206
  3. SEROQUEL [Suspect]
     Indication: POST-TRAUMATIC STRESS DISORDER
     Dosage: 25-50 MG HS PLUS 25 MG BID PRN
     Route: 048
     Dates: start: 20041206
  4. SEROQUEL [Suspect]
     Indication: AFFECTIVE DISORDER
     Dosage: 25-50 MG HS PLUS 25 MG BID PRN
     Route: 048
     Dates: start: 20041206
  5. SEROQUEL [Suspect]
     Indication: ANXIETY
     Dosage: 25-50 MG HS PLUS 25 MG BID PRN
     Route: 048
     Dates: start: 20041206
  6. SEROQUEL [Suspect]
     Indication: AGITATION
     Dosage: 25-50 MG HS PLUS 25 MG BID PRN
     Route: 048
     Dates: start: 20041206
  7. SEROQUEL [Suspect]
     Indication: SCHIZOPHRENIA
     Dosage: 25 TO 75 MG
     Route: 048
     Dates: start: 20041206, end: 20051215
  8. SEROQUEL [Suspect]
     Indication: BIPOLAR I DISORDER
     Dosage: 25 TO 75 MG
     Route: 048
     Dates: start: 20041206, end: 20051215
  9. SEROQUEL [Suspect]
     Indication: POST-TRAUMATIC STRESS DISORDER
     Dosage: 25 TO 75 MG
     Route: 048
     Dates: start: 20041206, end: 20051215
  10. SEROQUEL [Suspect]
     Indication: AFFECTIVE DISORDER
     Dosage: 25 TO 75 MG
     Route: 048
     Dates: start: 20041206, end: 20051215
  11. SEROQUEL [Suspect]
     Indication: ANXIETY
     Dosage: 25 TO 75 MG
     Route: 048
     Dates: start: 20041206, end: 20051215
  12. SEROQUEL [Suspect]
     Indication: AGITATION
     Dosage: 25 TO 75 MG
     Route: 048
     Dates: start: 20041206, end: 20051215
  13. SEROQUEL [Suspect]
     Indication: SCHIZOPHRENIA
     Route: 048
     Dates: start: 20051103, end: 20051215
  14. SEROQUEL [Suspect]
     Indication: BIPOLAR I DISORDER
     Route: 048
     Dates: start: 20051103, end: 20051215
  15. SEROQUEL [Suspect]
     Indication: POST-TRAUMATIC STRESS DISORDER
     Route: 048
     Dates: start: 20051103, end: 20051215
  16. SEROQUEL [Suspect]
     Indication: AFFECTIVE DISORDER
     Route: 048
     Dates: start: 20051103, end: 20051215
  17. SEROQUEL [Suspect]
     Indication: ANXIETY
     Route: 048
     Dates: start: 20051103, end: 20051215
  18. SEROQUEL [Suspect]
     Indication: AGITATION
     Route: 048
     Dates: start: 20051103, end: 20051215
  19. SEROQUEL [Suspect]
     Indication: SCHIZOPHRENIA
     Route: 048
     Dates: start: 20051130, end: 20061201
  20. SEROQUEL [Suspect]
     Indication: BIPOLAR I DISORDER
     Route: 048
     Dates: start: 20051130, end: 20061201
  21. SEROQUEL [Suspect]
     Indication: POST-TRAUMATIC STRESS DISORDER
     Route: 048
     Dates: start: 20051130, end: 20061201
  22. SEROQUEL [Suspect]
     Indication: AFFECTIVE DISORDER
     Route: 048
     Dates: start: 20051130, end: 20061201
  23. SEROQUEL [Suspect]
     Indication: ANXIETY
     Route: 048
     Dates: start: 20051130, end: 20061201
  24. SEROQUEL [Suspect]
     Indication: AGITATION
     Route: 048
     Dates: start: 20051130, end: 20061201
  25. SERTRALINE [Concomitant]
     Indication: DEPRESSION
     Dates: start: 19991025, end: 20030611
  26. SERTRALINE [Concomitant]
     Indication: DEPRESSION
     Dates: start: 20001120
  27. SERTRALINE [Concomitant]
     Indication: DEPRESSION
     Dates: start: 20020829
  28. TRAZODONE [Concomitant]
     Indication: INSOMNIA
     Dates: start: 19991025
  29. TRAZODONE [Concomitant]
     Indication: DEPRESSION
     Dates: start: 19991025
  30. TRAZODONE [Concomitant]
     Indication: INSOMNIA
     Dates: start: 20001120
  31. TRAZODONE [Concomitant]
     Indication: DEPRESSION
     Dates: start: 20001120
  32. TRAZODONE [Concomitant]
     Indication: INSOMNIA
     Dates: start: 20020829
  33. TRAZODONE [Concomitant]
     Indication: DEPRESSION
     Dates: start: 20020829
  34. TRAZODONE [Concomitant]
     Indication: INSOMNIA
     Route: 048
     Dates: start: 20061005
  35. TRAZODONE [Concomitant]
     Indication: DEPRESSION
     Route: 048
     Dates: start: 20061005
  36. TRAZODONE [Concomitant]
     Indication: INSOMNIA
     Dates: start: 20110710
  37. TRAZODONE [Concomitant]
     Indication: DEPRESSION
     Dates: start: 20110710
  38. HYDROCODONE [Concomitant]
  39. ZETIA [Concomitant]
     Route: 048
  40. FEXOFENADINE HCL [Concomitant]
     Route: 048
  41. HYDROCHLOROTHIAZIDE [Concomitant]
     Route: 048
  42. MULTIVITAMIN [Concomitant]
  43. PRAVASTATIN NA [Concomitant]
     Route: 048
  44. RANITIDINE HCL [Concomitant]
     Indication: GASTROINTESTINAL DISORDER
     Route: 048
  45. RANITIDINE HCL [Concomitant]
     Indication: GASTROINTESTINAL DISORDER
     Route: 048
     Dates: start: 20051130, end: 20061201
  46. HALDOL [Concomitant]
     Dosage: 5 MG EVERY THREE HOURS
     Dates: start: 20051018, end: 20051028
  47. RISPERDAL [Concomitant]
     Dates: start: 20051003, end: 20051103
  48. BUPROPION [Concomitant]
     Dates: start: 20021002, end: 20021018
  49. MIRTAZAPINE [Concomitant]
  50. FLUOXETINE [Concomitant]
  51. SERZONE [Concomitant]
  52. HYDROCODONE/APAP [Concomitant]
     Dosage: ONE TO TWO TABLETS BY MOUTH FOUR TIMES A DAY
     Dates: start: 20051017
  53. INSULIN [Concomitant]
     Indication: DIABETES MELLITUS
     Dosage: 70/30 15 UNITS SUBCUTANEOUSLY TWICE A DAY
     Dates: start: 20051016
  54. PREVACID [Concomitant]
     Dates: start: 20051018
  55. POTASSIUM CHLORIDE [Concomitant]
     Dates: start: 20051017
  56. MAGNESIUM OXIDE [Concomitant]
     Indication: HYPOMAGNESAEMIA
     Dates: start: 20051017
  57. METHADONE [Concomitant]
     Indication: PAIN
     Dosage: 5 MG ONE HALF TABLET EVERY EIGHT HOURS
     Dates: start: 20051017
  58. THIAMINE [Concomitant]
     Dates: start: 20051016
  59. CLONAZEPAM [Concomitant]
     Dates: start: 20110710
  60. NEXIUM [Concomitant]
     Dates: start: 20110710
  61. ASPIRIN [Concomitant]
     Dates: start: 20110710
  62. LEVOTHYROXINE [Concomitant]
     Dates: start: 20110710
  63. DOCUSATE SODIUM [Concomitant]
     Dates: start: 20110710
  64. PAROXETINE HCL [Concomitant]
     Indication: DEPRESSION
     Route: 048
     Dates: start: 20051130, end: 20061201
  65. ARIPIPRAZOLE [Concomitant]
     Dates: start: 20100525
  66. SIMVASTATIN [Concomitant]
     Dates: start: 201005
  67. CARBAMAZEPINE [Concomitant]
     Indication: SCHIZOPHRENIA
     Dates: start: 20131218
  68. PRAZOSIN [Concomitant]
     Indication: ABNORMAL DREAMS
     Route: 048
  69. SILDENAFIL CITRATE [Concomitant]
     Indication: ERECTILE DYSFUNCTION
     Dosage: 100 MG TABLET BY MOUTH AS DIRECTED.
     Route: 048
  70. ATORVASTATIN CALCIUM [Concomitant]
     Indication: BLOOD CHOLESTEROL ABNORMAL
     Route: 048
  71. OMEPRAZOLE [Concomitant]
     Route: 048
     Dates: start: 20111221
  72. AMOXICILLIN [Concomitant]
     Route: 048
     Dates: start: 20120112
  73. FUROSEMIDE [Concomitant]
     Dates: start: 20110719
  74. LISINOPRIL [Concomitant]
     Dates: start: 20110719
  75. ZYPREXA [Concomitant]
     Dates: start: 20110718

REACTIONS (44)
  - Pancreatitis acute [Unknown]
  - Diabetic coma [Unknown]
  - Myocardial infarction [Unknown]
  - Hyperglycaemic seizure [Unknown]
  - Cardiac arrest [Unknown]
  - Diabetic hyperosmolar coma [Unknown]
  - Diabetes mellitus [Unknown]
  - Pancreatitis [Unknown]
  - Troponin increased [Unknown]
  - Encephalopathy [Unknown]
  - Diabetic neuropathy [Unknown]
  - Brain injury [Unknown]
  - Hepatic failure [Unknown]
  - Metabolic acidosis [Unknown]
  - Respiratory failure [Unknown]
  - Pleural effusion [Unknown]
  - Localised intraabdominal fluid collection [Unknown]
  - Pelvic fluid collection [Unknown]
  - Electrolyte imbalance [Unknown]
  - Hypomagnesaemia [Unknown]
  - Dementia [Unknown]
  - Delirium [Unknown]
  - Renal failure acute [Unknown]
  - Nausea [Unknown]
  - Renal tubular necrosis [Unknown]
  - Pneumonia [Unknown]
  - Pericarditis [Unknown]
  - Pulmonary oedema [Unknown]
  - Electroencephalogram abnormal [Unknown]
  - Multi-organ failure [Unknown]
  - Hyponatraemia [Unknown]
  - Atelectasis [Unknown]
  - Pyrexia [Unknown]
  - Hyperglycaemia [Unknown]
  - Vomiting [Unknown]
  - Convulsion [Unknown]
  - Blood glucose increased [Unknown]
  - Type 2 diabetes mellitus [Unknown]
  - Blood potassium decreased [Unknown]
  - Ischaemia [Unknown]
  - Renal disorder [Unknown]
  - Blood creatinine increased [Unknown]
  - Hyperlipidaemia [Unknown]
  - Hypercholesterolaemia [Unknown]
